FAERS Safety Report 21661443 (Version 3)
Quarter: 2022Q4

REPORT INFORMATION
  Report Type: Report from Study
  Country: US (occurrence: US)
  Receive Date: 20221130
  Receipt Date: 20221208
  Transmission Date: 20230113
  Serious: Yes (Other)
  Sender: FDA-Public Use
  Company Number: US-ABBVIE-4214964

PATIENT
  Sex: Male

DRUGS (1)
  1. VENCLEXTA [Suspect]
     Active Substance: VENETOCLAX
     Indication: Lymphocytic leukaemia
     Dosage: TAKE 2 TABLET(S) BY MOUTH EVERY DAY WITH FOOD
     Route: 048

REACTIONS (4)
  - Brain neoplasm [Unknown]
  - Cognitive disorder [Unknown]
  - Central nervous system lesion [Unknown]
  - Chronic lymphocytic leukaemia [Unknown]
